FAERS Safety Report 9472504 (Version 1)
Quarter: 2013Q3

REPORT INFORMATION
  Report Type: Report from Study
  Country: US (occurrence: US)
  Receive Date: 20130823
  Receipt Date: 20130823
  Transmission Date: 20140515
  Serious: Yes (Hospitalization)
  Sender: FDA-Public Use
  Company Number: PHEH2013US017742

PATIENT
  Sex: Male

DRUGS (6)
  1. TOBI [Suspect]
     Indication: PSEUDOMONAS INFECTION
     Dosage: 1 DF, QD
  2. AZITHROMYCIN [Concomitant]
     Dosage: 250 MG, UNK
  3. ADVAIR DISKUS [Concomitant]
     Dosage: UNK
  4. NEXIUM [Concomitant]
     Dosage: 40 MG, UNK
  5. ASA [Concomitant]
     Dosage: 81 MG, UNK
  6. PULMOZYME [Concomitant]
     Dosage: UNK

REACTIONS (3)
  - Fungal infection [Unknown]
  - Mycobacterium avium complex infection [Unknown]
  - Pseudomonas infection [Unknown]
